FAERS Safety Report 23456073 (Version 5)
Quarter: 2024Q4

REPORT INFORMATION
  Report Type: Report from Study
  Country: DE (occurrence: DE)
  Receive Date: 20240130
  Receipt Date: 20241204
  Transmission Date: 20250114
  Serious: No
  Sender: ROCHE
  Company Number: DE-ROCHE-3498114

PATIENT
  Age: 40 Year
  Sex: Female

DRUGS (4)
  1. OCREVUS [Suspect]
     Active Substance: OCRELIZUMAB
     Indication: Primary progressive multiple sclerosis
     Dosage: LAST INFUSION: 27/12/2021 (2ND INITIAL DOSE).?THE PATIENT RESUMED THERAPY IN EARLY DEC-2022?LAST INF
     Route: 042
     Dates: start: 20211213
  2. PRIMIDONE [Concomitant]
     Active Substance: PRIMIDONE
     Dates: start: 20241101
  3. CARBAMAZEPINE [Concomitant]
     Active Substance: CARBAMAZEPINE
  4. VITAMIN D [Concomitant]
     Active Substance: VITAMIN D NOS

REACTIONS (4)
  - Herpes virus infection [Recovered/Resolved]
  - Limb discomfort [Not Recovered/Not Resolved]
  - Muscle spasticity [Recovered/Resolved]
  - Maternal exposure before pregnancy [Unknown]

NARRATIVE: CASE EVENT DATE: 20230501
